FAERS Safety Report 21308699 (Version 1)
Quarter: 2022Q3

REPORT INFORMATION
  Report Type: Spontaneous
  Country: US (occurrence: None)
  Receive Date: 20220908
  Receipt Date: 20220908
  Transmission Date: 20221026
  Serious: No
  Sender: FDA-Public Use
  Company Number: None

PATIENT
  Age: 69 Year
  Sex: Female
  Weight: 48.42 kg

DRUGS (10)
  1. CVS HEALTH SPORT SPF 100 CLEAR [Suspect]
     Active Substance: AVOBENZONE\HOMOSALATE\OCTISALATE\OCTOCRYLENE\OXYBENZONE
     Indication: Prophylaxis against solar radiation
     Dosage: FREQUENCY : DAILY;?
     Route: 061
     Dates: start: 20220822, end: 20220902
  2. SYNTHROID [Concomitant]
     Active Substance: LEVOTHYROXINE SODIUM
  3. ROSUVASTATIN [Concomitant]
     Active Substance: ROSUVASTATIN
  4. LOSARTAN POTASSIUM [Concomitant]
  5. PROLIA [Concomitant]
     Active Substance: DENOSUMAB
  6. FAMOTIDINE [Concomitant]
     Active Substance: FAMOTIDINE
  7. VITAL PROTEINS [Concomitant]
  8. COLLAGEN [Concomitant]
     Active Substance: COLLAGEN
  9. COENZYME Q10 [Concomitant]
     Active Substance: DIETARY SUPPLEMENT\UBIDECARENONE
  10. GNC CALCIUM CITRATE [Concomitant]

REACTIONS (5)
  - Application site erythema [None]
  - Application site pruritus [None]
  - Skin disorder [None]
  - Skin burning sensation [None]
  - Skin tightness [None]

NARRATIVE: CASE EVENT DATE: 20220902
